FAERS Safety Report 24023246 (Version 2)
Quarter: 2024Q3

REPORT INFORMATION
  Report Type: Report from Study
  Country: CN (occurrence: CN)
  Receive Date: 20240627
  Receipt Date: 20240710
  Transmission Date: 20241017
  Serious: No
  Sender: ROCHE
  Company Number: CN-ROCHE-3411205

PATIENT
  Age: 40 Year
  Sex: Female
  Weight: 62.5 kg

DRUGS (4)
  1. ALECTINIB [Suspect]
     Active Substance: ALECTINIB
     Indication: Lung cancer metastatic
     Route: 048
     Dates: start: 20230224
  2. PAIN KILLER (UNK INGREDIENTS) [Concomitant]
     Route: 065
     Dates: start: 20230224
  3. ESTAZOLAM [Concomitant]
     Active Substance: ESTAZOLAM
     Route: 048
     Dates: start: 20230302
  4. ALECTINIB [Concomitant]
     Active Substance: ALECTINIB
     Dates: start: 20230224

REACTIONS (1)
  - Blood creatine phosphokinase increased [Recovered/Resolved]

NARRATIVE: CASE EVENT DATE: 20230321
